FAERS Safety Report 5765472-9 (Version None)
Quarter: 2008Q2

REPORT INFORMATION
  Report Type: 
  Country: None (occurrence: None)
  Receive Date: 20080611
  Receipt Date: 20080610
  Transmission Date: 20081010
  Serious: Yes (Death, Hospitalization, Other)
  Sender: FDA-Public Use
  Company Number: B0454235A

PATIENT
  Age: 39 Year
  Sex: Female

DRUGS (28)
  1. FLOLAN [Suspect]
     Indication: PULMONARY HYPERTENSION
     Route: 042
     Dates: start: 20000921
  2. TRACLEER [Suspect]
     Route: 048
     Dates: start: 20060924
  3. FUROSEMIDE [Concomitant]
     Route: 048
  4. SPIRONOLACTONE [Concomitant]
     Route: 048
  5. DIGOXIN [Concomitant]
     Route: 048
  6. MERCAZOLE [Concomitant]
     Route: 048
  7. GOODMIN [Concomitant]
     Route: 048
  8. POTASSIUM GLUCONATE TAB [Concomitant]
     Route: 048
  9. FERROMIA [Concomitant]
     Route: 048
  10. CINAL [Concomitant]
     Route: 048
  11. UNKNOWN DRUG [Concomitant]
     Route: 048
     Dates: start: 20070112
  12. MEDICON [Concomitant]
     Route: 048
     Dates: start: 20060112
  13. BISOLVON [Concomitant]
     Route: 048
     Dates: start: 20060112
  14. POLARAMINE [Concomitant]
     Route: 048
     Dates: start: 20060112
  15. LEVOFLOXACIN [Concomitant]
     Route: 048
     Dates: start: 20060112
  16. DOBUTAMINE HYDROCHLORIDE [Concomitant]
     Dates: start: 20060210
  17. CEFAZOLIN SODIUM [Concomitant]
     Dates: start: 20060220, end: 20060315
  18. ADONA [Concomitant]
     Dates: start: 20060220, end: 20060225
  19. TRANSAMIN [Concomitant]
     Dates: start: 20060220, end: 20060225
  20. MODACIN [Concomitant]
     Route: 042
     Dates: start: 20060223, end: 20060228
  21. MINOMYCIN [Concomitant]
     Route: 042
     Dates: start: 20060228, end: 20060315
  22. FUROSEMIDE [Concomitant]
     Dates: start: 20060321, end: 20060627
  23. SILDENAFIL CITRATE [Concomitant]
     Route: 048
     Dates: start: 20060702
  24. VASOLAN [Concomitant]
     Route: 048
     Dates: start: 20060423
  25. VANCOMYCIN [Concomitant]
     Route: 042
     Dates: start: 20060722
  26. VANCOMYCIN HYDROCHLORIDE [Concomitant]
     Route: 048
     Dates: start: 20060711, end: 20060721
  27. BIFIDOBACTERIUM [Concomitant]
     Route: 048
  28. MUCOSTA [Concomitant]
     Route: 048

REACTIONS (6)
  - CARDIAC FAILURE [None]
  - CATHETER RELATED INFECTION [None]
  - NASOPHARYNGITIS [None]
  - PALPITATIONS [None]
  - PULMONARY HAEMORRHAGE [None]
  - SUPRAVENTRICULAR TACHYCARDIA [None]
